FAERS Safety Report 15869446 (Version 1)
Quarter: 2019Q1

REPORT INFORMATION
  Report Type: Spontaneous
  Country: ES (occurrence: ES)
  Receive Date: 20190125
  Receipt Date: 20190125
  Transmission Date: 20190417
  Serious: Yes (Hospitalization)
  Sender: FDA-Public Use
  Company Number: ES-MYLANLABS-2019M1006489

PATIENT
  Age: 67 Year
  Sex: Male

DRUGS (6)
  1. VENLAFAXINE [Suspect]
     Active Substance: VENLAFAXINE HYDROCHLORIDE
     Indication: DEPRESSION
     Dosage: 75 MILLIGRAM, 75 MG DIA
     Dates: start: 20150919
  2. SINTROM [Interacting]
     Active Substance: ACENOCOUMAROL
     Indication: ATRIAL FLUTTER
     Dosage: SP
     Route: 048
     Dates: start: 2013, end: 20171119
  3. OMEPRAZOL                          /00661201/ [Concomitant]
     Active Substance: OMEPRAZOLE
     Dosage: UNK UNK, QD, 1-0-0
     Dates: start: 20150919
  4. RAPAMUNE [Concomitant]
     Active Substance: SIROLIMUS
     Indication: RENAL TRANSPLANT
     Dosage: 1.5 MILLIGRAM, 1,5 MG DIA
     Route: 048
     Dates: start: 20110121
  5. ADIRO [Interacting]
     Active Substance: ASPIRIN
     Indication: VASCULAR DEVICE USER
     Dosage: UNK UNK, QD, 0-1-0
     Route: 048
     Dates: start: 20150919
  6. PREDNISONA [Concomitant]
     Active Substance: PREDNISONE
     Dosage: 5 MG DIA
     Route: 048
     Dates: start: 20150919

REACTIONS (2)
  - Upper gastrointestinal haemorrhage [Recovered/Resolved]
  - Drug interaction [Unknown]

NARRATIVE: CASE EVENT DATE: 20171119
